FAERS Safety Report 9712585 (Version 1)
Quarter: 2013Q4

REPORT INFORMATION
  Report Type: Spontaneous
  Country: US (occurrence: US)
  Receive Date: 20131126
  Receipt Date: 20131126
  Transmission Date: 20140711
  Serious: No
  Sender: FDA-Public Use
  Company Number: US-BRISTOL-MYERS SQUIBB COMPANY-18895342

PATIENT
  Age: 64 Year
  Sex: Male
  Weight: 67.57 kg

DRUGS (4)
  1. BYDUREON [Suspect]
     Dosage: NO OF INJ:6?LAST INJE ON:12MAY2013?5TH INJECTION ON 05MAY2013
     Dates: start: 20130407
  2. JANUVIA [Concomitant]
  3. METFORMIN [Concomitant]
  4. RAMIPRIL [Concomitant]

REACTIONS (2)
  - Rash pruritic [Not Recovered/Not Resolved]
  - Headache [Unknown]
